FAERS Safety Report 7040496-2 (Version None)
Quarter: 2010Q4

REPORT INFORMATION
  Report Type: 
  Country: None (occurrence: None)
  Receive Date: 20101008
  Receipt Date: 20101008
  Transmission Date: 20110411
  Serious: Yes (Life-Threatening)
  Sender: FDA-Public Use
  Company Number: None

PATIENT
  Age: 50 Year
  Sex: Female
  Weight: 5 kg

DRUGS (1)
  1. NITROFURANTIOIN MONO-MAC 100MG [Suspect]
     Indication: URINARY TRACT INFECTION
     Dosage: 1 CUP 2X A DAY MOUTH
     Route: 048
     Dates: start: 20100903

REACTIONS (7)
  - ABDOMINAL DISCOMFORT [None]
  - CHEST DISCOMFORT [None]
  - DIARRHOEA [None]
  - EYE SWELLING [None]
  - THROAT TIGHTNESS [None]
  - URTICARIA [None]
  - VOMITING [None]
